FAERS Safety Report 4490489-4 (Version None)
Quarter: 2004Q4

REPORT INFORMATION
  Report Type: 
  Country: None (occurrence: None)
  Receive Date: 20041028
  Receipt Date: 20041014
  Transmission Date: 20050328
  Serious: No
  Sender: FDA-Public Use
  Company Number: 2004-BP-09992BP

PATIENT
  Sex: Male

DRUGS (5)
  1. FLOMAX [Suspect]
     Indication: BENIGN PROSTATIC HYPERPLASIA
     Dosage: 0.4 MG (0.4 MG), PO
     Route: 048
  2. PROSCAR [Concomitant]
  3. ENTEX PSE (RESPAIRE-SR-1-20) [Concomitant]
  4. RHINOCORT AQUA (BUDESONIDE) [Concomitant]
  5. NIFEDIPINE [Concomitant]

REACTIONS (3)
  - COLON CANCER [None]
  - NOCTURIA [None]
  - OEDEMA PERIPHERAL [None]
